FAERS Safety Report 22283742 (Version 1)
Quarter: 2023Q2

REPORT INFORMATION
  Report Type: Spontaneous
  Country: BE (occurrence: BE)
  Receive Date: 20230504
  Receipt Date: 20230504
  Transmission Date: 20230721
  Serious: Yes (Other)
  Sender: FDA-Public Use
  Company Number: BE-FreseniusKabi-FK202305705

PATIENT
  Age: 70 Year
  Sex: Male
  Weight: 94 kg

DRUGS (6)
  1. PROPOFOL [Suspect]
     Active Substance: PROPOFOL
     Indication: Product used for unknown indication
     Route: 042
     Dates: start: 20230302, end: 20230302
  2. ROCURONIUM [Suspect]
     Active Substance: ROCURONIUM BROMIDE
     Indication: Anaesthesia
     Route: 042
     Dates: start: 20230302, end: 20230302
  3. CEFAZOLIN SODIUM [Suspect]
     Active Substance: CEFAZOLIN SODIUM
     Indication: Product used for unknown indication
     Route: 042
     Dates: start: 20230302, end: 20230302
  4. LIDOCAINE [Suspect]
     Active Substance: LIDOCAINE
     Indication: Product used for unknown indication
     Route: 042
     Dates: start: 20230302, end: 20230302
  5. Sufenta/Midazolam [Concomitant]
     Indication: Product used for unknown indication
     Dosage: SUFENTA/MIDAZOLAM COMBINED 15UG/ 1MG
     Route: 042
     Dates: start: 20230302, end: 20230302
  6. Sufenta/Midazolam [Concomitant]
     Indication: Product used for unknown indication
     Dosage: SUFENTA/MIDAZOLAM COMBINED 15UG/ 1MG
     Route: 042
     Dates: start: 20230302, end: 20230302

REACTIONS (4)
  - Anaphylactic shock [Recovering/Resolving]
  - Papule [Recovering/Resolving]
  - Hypotension [Recovering/Resolving]
  - Erythema [Recovering/Resolving]

NARRATIVE: CASE EVENT DATE: 20230302
